FAERS Safety Report 8122415-0 (Version None)
Quarter: 2012Q1

REPORT INFORMATION
  Report Type: 
  Country: None (occurrence: None)
  Receive Date: 20120208
  Receipt Date: 20120203
  Transmission Date: 20120608
  Serious: Yes (Other)
  Sender: FDA-Public Use
  Company Number: GB-GLAXOSMITHKLINE-B0779237A

PATIENT
  Age: 96 Year
  Sex: Female
  Weight: 60 kg

DRUGS (7)
  1. RANITIDINE [Suspect]
     Indication: GASTRIC DISORDER
     Route: 048
     Dates: start: 20120102, end: 20120118
  2. CALCIUM CARBONATE [Concomitant]
  3. ENOXAPARIN [Concomitant]
  4. FONDAPARINUX SODIUM [Concomitant]
  5. ASPIRIN [Concomitant]
  6. CLOPIDOGREL [Concomitant]
  7. ACETAMINOPHEN [Concomitant]

REACTIONS (1)
  - NEUTROPENIA [None]
